FAERS Safety Report 7450513-3 (Version None)
Quarter: 2011Q2

REPORT INFORMATION
  Report Type: 
  Country: None (occurrence: None)
  Receive Date: 20110502
  Receipt Date: 20110425
  Transmission Date: 20111010
  Serious: Yes (Death, Other)
  Sender: FDA-Public Use
  Company Number: PHHY2011IN35445

PATIENT
  Age: 30 Year
  Sex: Male

DRUGS (2)
  1. METHOTREXATE [Concomitant]
     Dosage: 10 MG/KG
  2. CYCLOSPORINE [Suspect]
     Indication: STEM CELL TRANSPLANT
     Dosage: 1.5 MG/KG/DAY

REACTIONS (17)
  - HAIR DISORDER [None]
  - RASH MACULAR [None]
  - JAUNDICE [None]
  - ACUTE GRAFT VERSUS HOST DISEASE IN SKIN [None]
  - SKIN OEDEMA [None]
  - ACUTE GRAFT VERSUS HOST DISEASE IN LIVER [None]
  - SKIN DISORDER [None]
  - SEPSIS [None]
  - RASH PRURITIC [None]
  - RASH GENERALISED [None]
  - GASTROINTESTINAL MUCOSAL EXFOLIATION [None]
  - DIARRHOEA [None]
  - RASH ERYTHEMATOUS [None]
  - ACUTE GRAFT VERSUS HOST DISEASE IN INTESTINE [None]
  - PARAKERATOSIS [None]
  - PYREXIA [None]
  - DIARRHOEA HAEMORRHAGIC [None]
